FAERS Safety Report 16221821 (Version 1)
Quarter: 2019Q2

REPORT INFORMATION
  Report Type: Spontaneous
  Country: JP (occurrence: JP)
  Receive Date: 20190422
  Receipt Date: 20190422
  Transmission Date: 20190711
  Serious: Yes (Hospitalization)
  Sender: FDA-Public Use
  Company Number: JP-ASTELLAS-2019JP007049

PATIENT
  Age: 73 Year
  Sex: Male

DRUGS (2)
  1. POLLAKISU [Concomitant]
     Active Substance: OXYBUTYNIN CHLORIDE
     Indication: PRODUCT USED FOR UNKNOWN INDICATION
     Dosage: 9 MG/DAY, UNKNOWN FREQ.
     Route: 065
     Dates: start: 20090410
  2. XTANDI [Suspect]
     Active Substance: ENZALUTAMIDE
     Indication: PROSTATE CANCER
     Route: 065
     Dates: start: 20170211

REACTIONS (1)
  - Urinary tract infection [Recovering/Resolving]
